FAERS Safety Report 14655865 (Version 1)
Quarter: 2018Q1

REPORT INFORMATION
  Report Type: Spontaneous
  Country: US (occurrence: US)
  Receive Date: 20180319
  Receipt Date: 20180319
  Transmission Date: 20180509
  Serious: No
  Sender: FDA-Public Use
  Company Number: US-BIOGEN-2018BI00542275

PATIENT
  Sex: Male

DRUGS (2)
  1. TECFIDERA [Suspect]
     Active Substance: DIMETHYL FUMARATE
     Indication: MULTIPLE SCLEROSIS
     Dosage: FOR 7 DAYS; STARTING DOSE
     Route: 048
     Dates: start: 201802
  2. TECFIDERA [Suspect]
     Active Substance: DIMETHYL FUMARATE
     Dosage: FOR 23 DAYS AFTER 120 MG DOSE
     Route: 048
     Dates: start: 201802

REACTIONS (4)
  - Gastrooesophageal reflux disease [Unknown]
  - Rash [Unknown]
  - Flushing [Unknown]
  - Nausea [Unknown]
